FAERS Safety Report 8921297 (Version 2)
Quarter: 2012Q4

REPORT INFORMATION
  Report Type: 
  Country: NZ (occurrence: NZ)
  Receive Date: 20121122
  Receipt Date: 20121205
  Transmission Date: 20130627
  Serious: Yes (Congenital Anomaly, Other)
  Sender: FDA-Public Use
  Company Number: NZ-RANBAXY-2012RR-62150

PATIENT
  Sex: Male
  Weight: 2 kg

DRUGS (2)
  1. QUINAPRIL [Suspect]
     Indication: MATERNAL EXPOSURE TIMING UNSPECIFIED
     Dosage: UNK
     Route: 064
  2. NITROFURANTOIN [Concomitant]
     Indication: PROPHYLAXIS
     Dosage: UNK
     Route: 065

REACTIONS (8)
  - Congenital cystic kidney disease [Recovering/Resolving]
  - Oligohydramnios [Recovered/Resolved]
  - Foetal growth restriction [Recovered/Resolved]
  - Respiratory distress [Recovered/Resolved]
  - Cranial sutures widening [Unknown]
  - Hyponatraemia [Unknown]
  - Hypocalcaemia [Recovered/Resolved]
  - Foetal exposure during pregnancy [Recovered/Resolved]
